FAERS Safety Report 12438234 (Version 3)
Quarter: 2016Q3

REPORT INFORMATION
  Report Type: Spontaneous
  Country: US (occurrence: US)
  Receive Date: 20160606
  Receipt Date: 20160721
  Transmission Date: 20161109
  Serious: No
  Sender: FDA-Public Use
  Company Number: US-B.I. PHARMACEUTICALS,INC./RIDGEFIELD-2016-BI-33223BP

PATIENT
  Age: 50 Year
  Sex: Male

DRUGS (2)
  1. DILTIAZEM. [Concomitant]
     Active Substance: DILTIAZEM
     Indication: HYPERTENSION
     Route: 048
     Dates: start: 2013
  2. COMBIVENT [Suspect]
     Active Substance: ALBUTEROL SULFATE\IPRATROPIUM BROMIDE
     Indication: SINUSITIS
     Dosage: DOSE PER APPLICATION: 20 MCG /100 MCG; DAILY DOSE: 80 MCG/400MCG; FORMULATION: MDI
     Route: 055
     Dates: start: 20150805

REACTIONS (5)
  - Product quality issue [Unknown]
  - Dyspnoea [Recovered/Resolved]
  - Off label use [Unknown]
  - Product taste abnormal [Unknown]
  - Dyspnoea [Not Recovered/Not Resolved]

NARRATIVE: CASE EVENT DATE: 2015
